FAERS Safety Report 8055942-5 (Version None)
Quarter: 2012Q1

REPORT INFORMATION
  Report Type: 
  Country: None (occurrence: None)
  Receive Date: 20120119
  Receipt Date: 20120111
  Transmission Date: 20120608
  Serious: Yes (Hospitalization)
  Sender: FDA-Public Use
  Company Number: FR-ROCHE-1014269

PATIENT
  Sex: Female

DRUGS (11)
  1. MINIRIN [Concomitant]
     Route: 065
  2. TRILEPTAL [Concomitant]
     Dosage: 600+300 MG
     Route: 065
     Dates: start: 20070101
  3. RHINOTROPHYL [Concomitant]
     Route: 065
     Dates: start: 20110101
  4. CLARITIN [Concomitant]
     Route: 065
     Dates: start: 20110101
  5. SIMVASTATIN [Concomitant]
     Route: 065
     Dates: start: 20090101
  6. PLAVIX [Concomitant]
     Route: 065
  7. HYDROCORTISONE [Concomitant]
     Dates: start: 20110101
  8. LEVOTHYROXINE SODIUM [Concomitant]
     Route: 065
  9. SOMATROPIN [Suspect]
     Indication: HYPOPITUITARISM
     Dosage: SODE: 10MG/2 ML
     Route: 058
     Dates: start: 20060524
  10. ZONEGRAN [Concomitant]
     Route: 065
     Dates: start: 20080201
  11. UVEDOSE [Concomitant]
     Route: 065
     Dates: start: 20110101

REACTIONS (1)
  - HYPONATRAEMIA [None]
